FAERS Safety Report 17122439 (Version 1)
Quarter: 2019Q4

REPORT INFORMATION
  Report Type: Spontaneous
  Country: FR (occurrence: FR)
  Receive Date: 20191206
  Receipt Date: 20191206
  Transmission Date: 20200122
  Serious: Yes (Hospitalization)
  Sender: FDA-Public Use
  Company Number: FR-EMD SERONO-E2B_90072877

PATIENT
  Age: 61 Year
  Sex: Female
  Weight: 58 kg

DRUGS (2)
  1. BAVENCIO [Suspect]
     Active Substance: AVELUMAB
     Indication: UTERINE LEIOMYOSARCOMA
     Route: 041
     Dates: start: 20191104, end: 20191104
  2. STIVARGA [Suspect]
     Active Substance: REGORAFENIB
     Indication: UTERINE LEIOMYOSARCOMA
     Route: 048
     Dates: start: 20191022, end: 20191111

REACTIONS (5)
  - Hyperhidrosis [Unknown]
  - Constipation [Not Recovered/Not Resolved]
  - Rash maculo-papular [Recovered/Resolved]
  - Pyrexia [Recovered/Resolved]
  - Off label use [Unknown]

NARRATIVE: CASE EVENT DATE: 20191108
